FAERS Safety Report 7208088-X (Version None)
Quarter: 2011Q1

REPORT INFORMATION
  Report Type: 
  Country: None (occurrence: None)
  Receive Date: 20110104
  Receipt Date: 20101230
  Transmission Date: 20110831
  Serious: No
  Sender: FDA-Public Use
  Company Number: US-PFIZER INC-2010182291

PATIENT
  Sex: Female
  Weight: 44.4 kg

DRUGS (3)
  1. TEGRETOL [Concomitant]
     Indication: CONVULSION
     Dosage: UNK
  2. DEPO-PROVERA [Suspect]
     Indication: CONTRACEPTION
     Dosage: UNK
     Route: 030
     Dates: start: 20060101
  3. CALCIUM [Concomitant]
     Dosage: UNK

REACTIONS (1)
  - ACNE [None]
